FAERS Safety Report 8263216-2 (Version None)
Quarter: 2012Q2

REPORT INFORMATION
  Report Type: 
  Country: None (occurrence: None)
  Receive Date: 20120405
  Receipt Date: 20120326
  Transmission Date: 20120825
  Serious: Yes (Hospitalization)
  Sender: FDA-Public Use
  Company Number: JP-ABBOTT-12P-087-0910732-00

PATIENT
  Sex: Male

DRUGS (11)
  1. ETIZOLAM [Concomitant]
     Indication: INSOMNIA
     Route: 048
     Dates: start: 20111102
  2. CLARITHROMYCIN [Suspect]
     Indication: UPPER RESPIRATORY TRACT INFLAMMATION
     Route: 048
     Dates: start: 20120227
  3. NICARDIPINE HYDROCHLORIDE [Concomitant]
     Indication: HYPERTENSION
     Route: 048
  4. AMBROXOL HYDROCHLORIDE [Concomitant]
     Indication: UPPER RESPIRATORY TRACT INFLAMMATION
     Route: 048
     Dates: start: 20120227
  5. CLOPERASTINE [Concomitant]
     Indication: UPPER RESPIRATORY TRACT INFLAMMATION
     Route: 048
     Dates: start: 20120227
  6. TRICHLORMETHIAZIDE [Concomitant]
     Indication: HYPERTENSION
  7. SODIUM PICOSULFATE HYDRATE [Concomitant]
     Indication: CONSTIPATION
     Route: 048
  8. DOXAZOSIN MESYLATE [Concomitant]
     Indication: HYPERTENSION
     Route: 048
  9. MEQUITAZINE [Concomitant]
     Indication: UPPER RESPIRATORY TRACT INFLAMMATION
     Route: 048
     Dates: start: 20120227
  10. SENNOSIDE [Concomitant]
     Indication: CONSTIPATION
     Route: 048
  11. INDOMETHACIN [Concomitant]
     Indication: UPPER RESPIRATORY TRACT INFLAMMATION
     Route: 048
     Dates: start: 20120227

REACTIONS (8)
  - DYSLALIA [None]
  - MALAISE [None]
  - VISUAL IMPAIRMENT [None]
  - PUPILLARY REFLEX IMPAIRED [None]
  - DYSPHAGIA [None]
  - DRUG LEVEL INCREASED [None]
  - VITH NERVE DISORDER [None]
  - MYDRIASIS [None]
